FAERS Safety Report 6603539-3 (Version None)
Quarter: 2010Q1

REPORT INFORMATION
  Report Type: 
  Country: None (occurrence: None)
  Receive Date: 20100226
  Receipt Date: 20090914
  Transmission Date: 20100710
  Serious: No
  Sender: FDA-Public Use
  Company Number: A0807260A

PATIENT
  Age: 37 Year
  Sex: Female

DRUGS (3)
  1. VALTREX [Suspect]
     Indication: GENITAL HERPES
     Dosage: 500MG PER DAY
     Route: 048
     Dates: start: 20090828
  2. BUSPIRONE HCL [Concomitant]
  3. SEROQUEL [Concomitant]

REACTIONS (6)
  - DISCOMFORT [None]
  - GENITAL HERPES [None]
  - URETHRITIS [None]
  - VAGINAL LESION [None]
  - VULVOVAGINAL DISCOMFORT [None]
  - VULVOVAGINAL PAIN [None]
